FAERS Safety Report 15764812 (Version 2)
Quarter: 2019Q1

REPORT INFORMATION
  Report Type: Spontaneous
  Country: CA (occurrence: CA)
  Receive Date: 20181227
  Receipt Date: 20190219
  Transmission Date: 20190417
  Serious: Yes (Other)
  Sender: FDA-Public Use
  Company Number: CA-ORION CORPORATION ORION PHARMA-TREX2018-3833

PATIENT
  Age: 58 Year
  Sex: Female

DRUGS (26)
  1. XELJANZ [Suspect]
     Active Substance: TOFACITINIB CITRATE
     Indication: PRODUCT USED FOR UNKNOWN INDICATION
     Route: 048
  2. LYRICA [Concomitant]
     Active Substance: PREGABALIN
     Route: 065
  3. CIPRALEX [Concomitant]
     Active Substance: ESCITALOPRAM OXALATE
     Route: 065
  4. ZYVOXAM [Suspect]
     Active Substance: LINEZOLID
     Indication: PRODUCT USED FOR UNKNOWN INDICATION
     Route: 065
  5. CYCLOBENZAPRINE. [Concomitant]
     Active Substance: CYCLOBENZAPRINE
     Route: 065
  6. ZOMIG [Concomitant]
     Active Substance: ZOLMITRIPTAN
     Route: 065
  7. CRESTOR OD [Concomitant]
     Active Substance: ROSUVASTATIN CALCIUM
     Route: 065
  8. LEFLUNOMIDE. [Suspect]
     Active Substance: LEFLUNOMIDE
     Indication: PRODUCT USED FOR UNKNOWN INDICATION
     Route: 065
  9. LYRICA [Suspect]
     Active Substance: PREGABALIN
     Indication: PRODUCT USED FOR UNKNOWN INDICATION
     Route: 065
  10. HUMIRA [Suspect]
     Active Substance: ADALIMUMAB
     Indication: PRODUCT USED FOR UNKNOWN INDICATION
     Route: 065
  11. PLAQUENIL [Concomitant]
     Active Substance: HYDROXYCHLOROQUINE SULFATE
     Route: 065
  12. CLONAZEPAM. [Concomitant]
     Active Substance: CLONAZEPAM
     Route: 065
  13. SYNTHROID [Concomitant]
     Active Substance: LEVOTHYROXINE SODIUM
     Route: 065
  14. METHOTREXATE (TRADE NAME UNKNOWN) [Suspect]
     Active Substance: METHOTREXATE
     Indication: PRODUCT USED FOR UNKNOWN INDICATION
     Route: 065
  15. ENBREL [Suspect]
     Active Substance: ETANERCEPT
     Indication: RHEUMATOID ARTHRITIS
     Route: 065
  16. ACTEMRA [Suspect]
     Active Substance: TOCILIZUMAB
     Indication: RHEUMATOID ARTHRITIS
     Route: 065
  17. CIPROFLOXACIN. [Concomitant]
     Active Substance: CIPROFLOXACIN
     Route: 065
  18. ADALAT CC [Concomitant]
     Active Substance: NIFEDIPINE
     Route: 065
  19. CELEBREX [Concomitant]
     Active Substance: CELECOXIB
     Route: 065
  20. LINEZOLID. [Concomitant]
     Active Substance: LINEZOLID
     Route: 065
  21. ROSUVASTATIN CALCIUM. [Concomitant]
     Active Substance: ROSUVASTATIN CALCIUM
     Route: 065
  22. NIFEDIPINE. [Concomitant]
     Active Substance: NIFEDIPINE
     Route: 065
  23. LYRICA [Suspect]
     Active Substance: PREGABALIN
     Route: 065
  24. SULFASALAZINE. [Suspect]
     Active Substance: SULFASALAZINE
     Indication: PRODUCT USED FOR UNKNOWN INDICATION
     Route: 065
  25. CODEINE [Concomitant]
     Active Substance: CODEINE
     Route: 065
  26. RISEDRONATE NA [Concomitant]
     Active Substance: RISEDRONATE SODIUM
     Route: 065

REACTIONS (37)
  - Drug intolerance [Unknown]
  - Pyrexia [Unknown]
  - Visual impairment [Unknown]
  - Dry mouth [Unknown]
  - Joint swelling [Unknown]
  - Oral herpes [Unknown]
  - Antibody test positive [Unknown]
  - Insomnia [Unknown]
  - Musculoskeletal stiffness [Unknown]
  - Constipation [Unknown]
  - Hypotension [Unknown]
  - Hyperhidrosis [Not Recovered/Not Resolved]
  - Peripheral swelling [Unknown]
  - Red blood cell sedimentation rate increased [Unknown]
  - Dyspnoea exertional [Unknown]
  - Blood glucose increased [Not Recovered/Not Resolved]
  - Back pain [Unknown]
  - Rheumatoid arthritis [Not Recovered/Not Resolved]
  - Infrequent bowel movements [Unknown]
  - Loss of personal independence in daily activities [Unknown]
  - Asthenia [Not Recovered/Not Resolved]
  - Tuberculin test positive [Not Recovered/Not Resolved]
  - Temperature intolerance [Unknown]
  - Abdominal discomfort [Unknown]
  - Dizziness [Unknown]
  - Fall [Unknown]
  - Fatigue [Unknown]
  - Myalgia [Unknown]
  - Dry eye [Not Recovered/Not Resolved]
  - Arthralgia [Unknown]
  - Osteoarthritis [Unknown]
  - Pain [Unknown]
  - Tenderness [Unknown]
  - Drug ineffective [Unknown]
  - Vertigo [Unknown]
  - Abdominal pain upper [Not Recovered/Not Resolved]
  - Joint range of motion decreased [Unknown]
